FAERS Safety Report 17362733 (Version 1)
Quarter: 2020Q1

REPORT INFORMATION
  Report Type: Spontaneous
  Country: US (occurrence: US)
  Receive Date: 20200203
  Receipt Date: 20200203
  Transmission Date: 20200409
  Serious: Yes (Hospitalization)
  Sender: FDA-Public Use
  Company Number: US-ASTRAZENECA-2020SE14788

PATIENT
  Age: 338 Day
  Sex: Male

DRUGS (2)
  1. SYNAGIS [Suspect]
     Active Substance: PALIVIZUMAB
     Indication: ILL-DEFINED DISORDER
     Route: 030
     Dates: start: 20200107
  2. SYNAGIS [Suspect]
     Active Substance: PALIVIZUMAB
     Indication: ILL-DEFINED DISORDER
     Route: 030
     Dates: start: 202001

REACTIONS (3)
  - Respiratory distress [Unknown]
  - Condition aggravated [Unknown]
  - Respiratory syncytial virus infection [Unknown]

NARRATIVE: CASE EVENT DATE: 20200104
